FAERS Safety Report 9761211 (Version 3)
Quarter: 2014Q1

REPORT INFORMATION
  Report Type: Spontaneous
  Country: US (occurrence: US)
  Receive Date: 20131216
  Receipt Date: 20140227
  Transmission Date: 20141002
  Serious: Yes (Other)
  Sender: FDA-Public Use
  Company Number: US-PFIZER INC-2013359354

PATIENT
  Age: 45 Year
  Sex: Female
  Weight: 61.22 kg

DRUGS (11)
  1. RELPAX [Suspect]
     Indication: MIGRAINE
     Dosage: 40 MG, AS NEEDED
     Dates: start: 2003
  2. RELPAX [Suspect]
     Dosage: 40 MG, 1X/DAY
  3. FLUOXETINE HYDROCHLORIDE [Concomitant]
     Indication: DEPRESSION
     Dosage: 20 MG, 1X/DAY (1 CAP IN THE MORNING ONCE A DAY)
     Route: 048
  4. MELOXICAM [Concomitant]
     Dosage: 7.5 MG, 2X/DAY (1 CAP WITH MEAL)
  5. PROMETHAZINE HYDROCHLORIDE [Concomitant]
     Dosage: 25 MG, AS NEEDED (1 TAB Q 6H PRN)
  6. NORCO [Concomitant]
     Indication: PAIN
     Dosage: 1 DF (HYDROCODONE BITARTRATE (10 MG), PARACETAMOL (325MG)), AS NEEDED (EVERY 6 HRS)
  7. TOPAMAX [Concomitant]
     Dosage: 100 MG, 2X/DAY
  8. XANAX [Concomitant]
     Dosage: 1 MG, 3X/DAY
  9. MOBIC [Concomitant]
     Dosage: 15 MG, 1X/DAY
  10. COQ-10 [Concomitant]
     Dosage: 100 MG, 2X/DAY
  11. BUTALBITAL, ACETAMINOPHEN + CAFFEINE [Concomitant]
     Indication: TENSION HEADACHE
     Dosage: 1 DF, AS NEEDED

REACTIONS (8)
  - Back injury [Unknown]
  - Back disorder [Unknown]
  - Uterine haemorrhage [Unknown]
  - Drug ineffective [Unknown]
  - Drug intolerance [Unknown]
  - Influenza [Unknown]
  - Menstruation irregular [Unknown]
  - Chest discomfort [Unknown]
